FAERS Safety Report 6475746-4 (Version None)
Quarter: 2009Q4

REPORT INFORMATION
  Report Type: 
  Country: None (occurrence: None)
  Receive Date: 20091204
  Receipt Date: 20090105
  Transmission Date: 20100525
  Serious: No
  Sender: FDA-Public Use
  Company Number: US-AMGEN-KDL326985

PATIENT
  Sex: Female
  Weight: 100.3 kg

DRUGS (15)
  1. ENBREL [Suspect]
     Indication: RHEUMATOID ARTHRITIS
     Route: 058
     Dates: start: 20080926
  2. CLAMARA [Concomitant]
  3. GLUCOSAMINE [Concomitant]
  4. MAXALT [Concomitant]
  5. PREMARIN [Concomitant]
  6. SINGULAIR [Concomitant]
  7. SYNTHROID [Concomitant]
  8. TRIAMTERENE AND HYDROCHLOROTHIAZIDE [Concomitant]
  9. BETAMETHASONE DIPROPIONATE [Concomitant]
     Dates: start: 20080722
  10. CEPHALEXIN [Concomitant]
     Dates: start: 20080722
  11. CLARINEX [Concomitant]
     Dates: start: 20080722
  12. DIFLUCAN [Concomitant]
     Dates: start: 20080722
  13. HYDROXYZINE [Concomitant]
     Dates: start: 20080722
  14. PREDNISONE [Concomitant]
     Dates: start: 20080722
  15. TYLENOL W/ CODEINE NO. 3 [Concomitant]
     Dates: start: 20080722

REACTIONS (4)
  - DRY MOUTH [None]
  - INJECTION SITE PAIN [None]
  - RHEUMATOID ARTHRITIS [None]
  - SLEEP DISORDER [None]
